FAERS Safety Report 24246324 (Version 1)
Quarter: 2024Q3

REPORT INFORMATION
  Report Type: Spontaneous
  Country: US (occurrence: None)
  Receive Date: 20240825
  Receipt Date: 20240825
  Transmission Date: 20241017
  Serious: No
  Sender: ASTRAZENECA
  Company Number: 2024A190348

PATIENT
  Age: 81 Year
  Sex: Male
  Weight: 70.3 kg

DRUGS (2)
  1. CALQUENCE [Suspect]
     Active Substance: ACALABRUTINIB
     Indication: Chronic lymphocytic leukaemia
     Route: 048
     Dates: start: 20160823
  2. BRUKINSA [Suspect]
     Active Substance: ZANUBRUTINIB
     Indication: Chronic lymphocytic leukaemia
     Route: 048
     Dates: start: 20240710

REACTIONS (5)
  - Dizziness [Unknown]
  - Vision blurred [Unknown]
  - Contusion [Unknown]
  - Liver function test abnormal [Unknown]
  - Dry eye [Unknown]
